FAERS Safety Report 6679717-4 (Version None)
Quarter: 2010Q2

REPORT INFORMATION
  Report Type: 
  Country: None (occurrence: None)
  Receive Date: 20100413
  Receipt Date: 20100407
  Transmission Date: 20101027
  Serious: Yes (Other)
  Sender: FDA-Public Use
  Company Number: SG-GENENTECH-299383

PATIENT
  Age: 65 Year
  Sex: Female

DRUGS (1)
  1. ACTIVASE [Suspect]
     Indication: RETINAL ARTERY OCCLUSION

REACTIONS (1)
  - ISCHAEMIC STROKE [None]
